FAERS Safety Report 15242629 (Version 3)
Quarter: 2019Q2

REPORT INFORMATION
  Report Type: Other
  Country: GB (occurrence: GB)
  Receive Date: 20180806
  Receipt Date: 20190520
  Transmission Date: 20190711
  Serious: Yes (Hospitalization, Other)
  Sender: FDA-Public Use
  Company Number: GB-LUPIN PHARMACEUTICALS INC.-2018-05512

PATIENT
  Sex: Female

DRUGS (4)
  1. QUETIAPINE FUMARATE. [Suspect]
     Active Substance: QUETIAPINE FUMARATE
     Indication: AGITATION
  2. RISPERIDONE. [Suspect]
     Active Substance: RISPERIDONE
     Indication: AGITATION
  3. RISPERIDONE. [Suspect]
     Active Substance: RISPERIDONE
     Indication: AGGRESSION
     Dosage: UNK
     Route: 065
  4. QUETIAPINE FUMARATE. [Suspect]
     Active Substance: QUETIAPINE FUMARATE
     Indication: AGGRESSION
     Dosage: UNK
     Route: 048

REACTIONS (7)
  - Somnolence [Recovering/Resolving]
  - Off label use [Unknown]
  - Ischaemic stroke [Recovered/Resolved]
  - Product use in unapproved indication [Unknown]
  - Dehydration [Recovering/Resolving]
  - Acute kidney injury [Unknown]
  - Pneumonia aspiration [Unknown]
